FAERS Safety Report 5657300-7 (Version None)
Quarter: 2008Q1

REPORT INFORMATION
  Report Type: 
  Country: None (occurrence: None)
  Receive Date: 20080310
  Receipt Date: 20080303
  Transmission Date: 20080703
  Serious: Yes (Hospitalization)
  Sender: FDA-Public Use
  Company Number: US-ABBOTT-07P-163-0427676-00

PATIENT
  Sex: Female
  Weight: 90.8 kg

DRUGS (5)
  1. TRICOR [Suspect]
     Indication: BLOOD TRIGLYCERIDES INCREASED
     Route: 048
     Dates: start: 20071101, end: 20071129
  2. TRICOR [Suspect]
     Indication: BLOOD CHOLESTEROL INCREASED
  3. ESCITALOPRAM OXALATE [Concomitant]
     Indication: ANXIETY
     Route: 048
     Dates: start: 20050101
  4. ESCITALOPRAM OXALATE [Concomitant]
     Indication: DEPRESSION
  5. CLONAZEPAM [Concomitant]
     Indication: ANXIETY
     Route: 048
     Dates: start: 20050101

REACTIONS (9)
  - ABDOMINAL PAIN [None]
  - ACUTE CORONARY SYNDROME [None]
  - CHEST PAIN [None]
  - FEELING HOT [None]
  - HEPATIC ENZYME INCREASED [None]
  - HEPATIC STEATOSIS [None]
  - HYPOACUSIS [None]
  - LUNG NEOPLASM [None]
  - VISION BLURRED [None]
